FAERS Safety Report 14628175 (Version 1)
Quarter: 2018Q1

REPORT INFORMATION
  Report Type: Spontaneous
  Country: US (occurrence: US)
  Receive Date: 20180312
  Receipt Date: 20180312
  Transmission Date: 20180509
  Serious: No
  Sender: FDA-Public Use
  Company Number: US-ALLERGAN-1761247US

PATIENT
  Sex: Female

DRUGS (2)
  1. SYNTHROID [Concomitant]
     Active Substance: LEVOTHYROXINE SODIUM
     Indication: THYROIDECTOMY
     Route: 065
  2. ESTRACE [Suspect]
     Active Substance: ESTRADIOL
     Indication: ATROPHIC VULVOVAGINITIS
     Dosage: UNK
     Route: 065
     Dates: start: 20170807, end: 20171001

REACTIONS (6)
  - Blood thyroid stimulating hormone increased [Unknown]
  - Drug interaction [Unknown]
  - Breast tenderness [Recovered/Resolved]
  - Vaginal haemorrhage [Recovered/Resolved]
  - Weight increased [Unknown]
  - Urine odour abnormal [Unknown]
